FAERS Safety Report 10793880 (Version 1)
Quarter: 2015Q1

REPORT INFORMATION
  Report Type: Spontaneous
  Country: US (occurrence: US)
  Receive Date: 20150213
  Receipt Date: 20150213
  Transmission Date: 20150721
  Serious: Yes (Other)
  Sender: FDA-Public Use
  Company Number: US-ABBVIE-15P-163-1345845-00

PATIENT
  Sex: Male

DRUGS (1)
  1. ANDROGEL [Suspect]
     Active Substance: TESTOSTERONE
     Indication: BLOOD TESTOSTERONE DECREASED
     Route: 061
     Dates: start: 20111026, end: 201304

REACTIONS (8)
  - Anxiety [Unknown]
  - Physical disability [Unknown]
  - Emotional distress [Unknown]
  - Economic problem [Unknown]
  - Impaired work ability [Unknown]
  - Pain [Unknown]
  - Ischaemic stroke [Unknown]
  - Cerebrovascular accident [Unknown]

NARRATIVE: CASE EVENT DATE: 20130216
